FAERS Safety Report 21559020 (Version 1)
Quarter: 2022Q4

REPORT INFORMATION
  Report Type: Spontaneous
  Country: US (occurrence: US)
  Receive Date: 20221107
  Receipt Date: 20221107
  Transmission Date: 20230113
  Serious: No
  Sender: FDA-Public Use
  Company Number: US-GLAXOSMITHKLINE-USCH2022041901

PATIENT
  Sex: Male

DRUGS (3)
  1. ADVIL [Suspect]
     Active Substance: IBUPROFEN
     Indication: Arthritis
     Dosage: UNK
  2. ADVIL [Suspect]
     Active Substance: IBUPROFEN
     Indication: Arthralgia
  3. ADVIL [Suspect]
     Active Substance: IBUPROFEN
     Indication: Sleep disorder

REACTIONS (1)
  - Therapeutic product effect incomplete [Unknown]
